FAERS Safety Report 13121167 (Version 2)
Quarter: 2017Q1

REPORT INFORMATION
  Report Type: Spontaneous
  Country: DZ (occurrence: DZ)
  Receive Date: 20170117
  Receipt Date: 20170209
  Transmission Date: 20170428
  Serious: Yes (Death, Hospitalization, Other)
  Sender: FDA-Public Use
  Company Number: DZ-NOVOPROD-526084

PATIENT
  Age: 49 Year
  Sex: Female
  Weight: 80 kg

DRUGS (2)
  1. ACTRAPID [Suspect]
     Active Substance: INSULIN HUMAN
     Indication: DIABETIC KETOACIDOSIS
     Dosage: 40IU OVER 4 HOURS
     Route: 042
  2. ACTRAPID [Suspect]
     Active Substance: INSULIN HUMAN
     Indication: TYPE 2 DIABETES MELLITUS
     Dosage: 10 IU EVERY HOUR FOR 6 HOURS
     Route: 042

REACTIONS (2)
  - Acute kidney injury [Unknown]
  - Diabetic ketoacidotic hyperglycaemic coma [Fatal]

NARRATIVE: CASE EVENT DATE: 201612
